FAERS Safety Report 4352177-4 (Version None)
Quarter: 2004Q2

REPORT INFORMATION
  Report Type: 
  Country: None (occurrence: None)
  Receive Date: 20040428
  Receipt Date: 20040413
  Transmission Date: 20050107
  Serious: Yes (Disabling)
  Sender: FDA-Public Use
  Company Number: CEL-2004-00330-SLO

PATIENT
  Age: 14 Year
  Sex: Male

DRUGS (3)
  1. METADATE CD [Suspect]
     Indication: ATTENTION DEFICIT/HYPERACTIVITY DISORDER
     Dosage: 20 MG ONCE DAILY, ORALLY
     Route: 048
     Dates: start: 20040206, end: 20040304
  2. RITALIN [Concomitant]
  3. CLONIDINE [Concomitant]

REACTIONS (3)
  - INITIAL INSOMNIA [None]
  - PARADOXICAL DRUG REACTION [None]
  - TIC [None]
